FAERS Safety Report 4299695-5 (Version None)
Quarter: 2004Q1

REPORT INFORMATION
  Report Type: 
  Country: None (occurrence: None)
  Receive Date: 20040126
  Receipt Date: 20031110
  Transmission Date: 20041129
  Serious: No
  Sender: FDA-Public Use
  Company Number: USA031152153

PATIENT
  Age: 12 Year
  Sex: Male
  Weight: 39 kg

DRUGS (2)
  1. STRATTERA [Suspect]
     Dosage: 18 MG/IN THE MORNING
     Dates: start: 20031109
  2. ADDERALL 10 [Concomitant]

REACTIONS (7)
  - ASTHENIA [None]
  - CHILLS [None]
  - DIZZINESS [None]
  - FLUSHING [None]
  - HEADACHE [None]
  - MOOD SWINGS [None]
  - PRURITUS [None]
